FAERS Safety Report 10175121 (Version 1)
Quarter: 2014Q2

REPORT INFORMATION
  Report Type: Report from Study
  Country: AR (occurrence: AR)
  Receive Date: 20140515
  Receipt Date: 20140515
  Transmission Date: 20141212
  Serious: Yes (Other)
  Sender: FDA-Public Use
  Company Number: PHHY2014AR059130

PATIENT
  Sex: Male

DRUGS (1)
  1. DIOVAN D [Suspect]
     Indication: HYPERTENSION
     Dosage: ONE TABLET (160/12.5 MG), DAILY
     Route: 048

REACTIONS (1)
  - VIIth nerve paralysis [Recovered/Resolved]
